FAERS Safety Report 7428023-9 (Version None)
Quarter: 2011Q2

REPORT INFORMATION
  Report Type: 
  Country: None (occurrence: None)
  Receive Date: 20110421
  Receipt Date: 20110413
  Transmission Date: 20111010
  Serious: Yes (Hospitalization, Other)
  Sender: FDA-Public Use
  Company Number: US-BIOGENIDEC-2009BI001090

PATIENT
  Age: 45 Year
  Sex: Female
  Weight: 138 kg

DRUGS (7)
  1. DETROL [Concomitant]
     Indication: URINARY INCONTINENCE
     Route: 048
  2. SIMVASTATIN [Concomitant]
     Indication: HYPERLIPIDAEMIA
  3. TYSABRI [Suspect]
     Indication: MULTIPLE SCLEROSIS
     Route: 042
     Dates: start: 20071114
  4. LEXAPRO [Concomitant]
     Indication: PRODUCT USED FOR UNKNOWN INDICATION
     Route: 048
  5. DILAUDID [Concomitant]
     Indication: PAIN
  6. AMANTADINE HCL [Concomitant]
     Indication: PRODUCT USED FOR UNKNOWN INDICATION
     Route: 048
  7. TRIAMTERENE AND HYDROCHLOROTHIAZIDE [Concomitant]
     Indication: PRODUCT USED FOR UNKNOWN INDICATION
     Route: 048

REACTIONS (12)
  - DEVICE OCCLUSION [None]
  - WOUND DEHISCENCE [None]
  - BLADDER PROLAPSE [None]
  - POST PROCEDURAL COMPLICATION [None]
  - MULTIPLE SCLEROSIS [None]
  - ENDOMETRIAL HYPERPLASIA [None]
  - VOMITING [None]
  - URINARY INCONTINENCE [None]
  - DECREASED APPETITE [None]
  - UTERINE POLYP [None]
  - PARALYSIS [None]
  - URETHRAL DISORDER [None]
